FAERS Safety Report 5163557-1 (Version None)
Quarter: 2006Q4

REPORT INFORMATION
  Report Type: 
  Country: None (occurrence: None)
  Receive Date: 20061204
  Receipt Date: 20061122
  Transmission Date: 20070319
  Serious: Yes (Other)
  Sender: FDA-Public Use
  Company Number: PHBS2006JP18338

PATIENT
  Age: 4 Year
  Sex: Female

DRUGS (1)
  1. CYCLOSPORINE [Suspect]
     Route: 065

REACTIONS (1)
  - COLITIS ULCERATIVE [None]
